FAERS Safety Report 17239288 (Version 1)
Quarter: 2020Q1

REPORT INFORMATION
  Report Type: Spontaneous
  Country: US (occurrence: US)
  Receive Date: 20200106
  Receipt Date: 20200106
  Transmission Date: 20200409
  Serious: No
  Sender: FDA-Public Use
  Company Number: US-ABBVIE-19K-163-2839512-00

PATIENT
  Age: 51 Year
  Sex: Female
  Weight: 53.57 kg

DRUGS (6)
  1. PREDNISONE. [Suspect]
     Active Substance: PREDNISONE
     Indication: PRODUCT USED FOR UNKNOWN INDICATION
     Dosage: DAY 1
     Route: 065
     Dates: start: 20190625, end: 20190625
  2. PREDNISONE. [Suspect]
     Active Substance: PREDNISONE
     Dosage: DAY 2
     Route: 065
     Dates: start: 20190626, end: 20190626
  3. VENCLEXTA [Suspect]
     Active Substance: VENETOCLAX
     Indication: PLASMA CELL MYELOMA
     Dosage: PILLS
     Route: 048
     Dates: start: 20190625, end: 201906
  4. VENCLEXTA [Suspect]
     Active Substance: VENETOCLAX
     Route: 048
     Dates: start: 20190625, end: 2019
  5. VENCLEXTA [Suspect]
     Active Substance: VENETOCLAX
     Dosage: TAKE 8 TABLET(S) BY MOUTH
     Route: 048
     Dates: start: 2019, end: 2019
  6. VENCLEXTA [Suspect]
     Active Substance: VENETOCLAX
     Dosage: 6 PILLS PER DAY
     Route: 048
     Dates: start: 2019

REACTIONS (13)
  - Somnolence [Unknown]
  - Odynophagia [Not Recovered/Not Resolved]
  - Oropharyngeal pain [Not Recovered/Not Resolved]
  - Poor quality sleep [Not Recovered/Not Resolved]
  - Nausea [Recovered/Resolved]
  - Abdominal distension [Unknown]
  - Headache [Recovered/Resolved]
  - Pharyngeal inflammation [Not Recovered/Not Resolved]
  - Pharyngitis [Not Recovered/Not Resolved]
  - Muscle spasms [Recovered/Resolved]
  - Bowel movement irregularity [Not Recovered/Not Resolved]
  - Intentional product use issue [Unknown]
  - Fatigue [Not Recovered/Not Resolved]

NARRATIVE: CASE EVENT DATE: 201906
